FAERS Safety Report 9989206 (Version 1)
Quarter: 2014Q1

REPORT INFORMATION
  Report Type: Spontaneous
  Country: GB (occurrence: GB)
  Receive Date: 20140310
  Receipt Date: 20140310
  Transmission Date: 20141002
  Serious: Yes (Other)
  Sender: FDA-Public Use
  Company Number: 2014SP000252

PATIENT
  Sex: Female

DRUGS (36)
  1. METHOTREXATE [Suspect]
     Indication: URTICARIA CHRONIC
     Route: 048
  2. METHOTREXATE [Suspect]
     Indication: ANGIOEDEMA
     Route: 048
  3. METHOTREXATE [Suspect]
     Indication: URTICARIA CHRONIC
  4. METHOTREXATE [Suspect]
     Indication: ANGIOEDEMA
  5. PREDNISOLONE [Suspect]
     Indication: URTICARIA CHRONIC
  6. PREDNISOLONE [Suspect]
     Indication: ANGIOEDEMA
  7. PREDNISOLONE [Suspect]
     Indication: URTICARIA CHRONIC
  8. PREDNISOLONE [Suspect]
     Indication: ANGIOEDEMA
  9. CICLOSPORIN [Suspect]
     Indication: URTICARIA CHRONIC
  10. CICLOSPORIN [Suspect]
     Indication: ANGIOEDEMA
  11. CICLOSPORIN [Suspect]
     Indication: URTICARIA CHRONIC
  12. CICLOSPORIN [Suspect]
     Indication: ANGIOEDEMA
  13. CETIRIZINE [Suspect]
     Indication: URTICARIA CHRONIC
  14. CETIRIZINE [Suspect]
     Indication: ANGIOEDEMA
  15. CETIRIZINE [Suspect]
     Indication: URTICARIA CHRONIC
  16. CETIRIZINE [Suspect]
     Indication: ANGIOEDEMA
  17. LORATADINE [Suspect]
     Indication: URTICARIA CHRONIC
     Route: 048
  18. LORATADINE [Suspect]
     Indication: ANGIOEDEMA
     Route: 048
  19. LORATADINE [Suspect]
     Indication: URTICARIA CHRONIC
  20. LORATADINE [Suspect]
     Indication: ANGIOEDEMA
  21. FEXOFENADINE [Suspect]
     Indication: URTICARIA CHRONIC
  22. FEXOFENADINE [Suspect]
     Indication: ANGIOEDEMA
  23. FEXOFENADINE [Suspect]
     Indication: URTICARIA CHRONIC
  24. FEXOFENADINE [Suspect]
     Indication: ANGIOEDEMA
  25. HYDROXYZINE [Suspect]
     Indication: URTICARIA CHRONIC
  26. HYDROXYZINE [Suspect]
     Indication: ANGIOEDEMA
  27. HYDROXYZINE [Suspect]
     Indication: URTICARIA CHRONIC
  28. HYDROXYZINE [Suspect]
     Indication: ANGIOEDEMA
  29. HYDROXYCHLOROQUINE [Suspect]
     Indication: URTICARIA CHRONIC
  30. HYDROXYCHLOROQUINE [Suspect]
     Indication: ANGIOEDEMA
  31. HYDROXYCHLOROQUINE [Suspect]
     Indication: URTICARIA CHRONIC
  32. HYDROXYCHLOROQUINE [Suspect]
     Indication: ANGIOEDEMA
  33. DAPSONE [Suspect]
     Indication: URTICARIA CHRONIC
  34. DAPSONE [Suspect]
     Indication: ANGIOEDEMA
  35. DAPSONE [Suspect]
     Indication: URTICARIA CHRONIC
  36. DAPSONE [Suspect]
     Indication: ANGIOEDEMA

REACTIONS (6)
  - Asthma [Not Recovered/Not Resolved]
  - Drug ineffective [Unknown]
  - Drug effect incomplete [Not Recovered/Not Resolved]
  - Angioedema [Not Recovered/Not Resolved]
  - Urticaria [Not Recovered/Not Resolved]
  - Blood pressure increased [Unknown]
